FAERS Safety Report 26083279 (Version 4)
Quarter: 2025Q4

REPORT INFORMATION
  Report Type: Report from Study
  Country: US (occurrence: US)
  Receive Date: 20251124
  Receipt Date: 20251230
  Transmission Date: 20260117
  Serious: Yes (Other)
  Sender: MALLINCKRODT
  Company Number: US-MALLINCKRODT-MNK202507213

PATIENT
  Sex: Female

DRUGS (1)
  1. CORTICOTROPIN [Suspect]
     Active Substance: CORTICOTROPIN
     Indication: Keratitis
     Dosage: 80 UNITS
     Dates: start: 20240209

REACTIONS (5)
  - Vascular occlusion [Recovering/Resolving]
  - Nervousness [Unknown]
  - Muscle spasms [Unknown]
  - Insomnia [Unknown]
  - Injection site pruritus [Unknown]
